FAERS Safety Report 15859899 (Version 1)
Quarter: 2019Q1

REPORT INFORMATION
  Report Type: Spontaneous
  Country: DE (occurrence: DE)
  Receive Date: 20190123
  Receipt Date: 20190123
  Transmission Date: 20190417
  Serious: Yes (Hospitalization, Disabling, Other)
  Sender: FDA-Public Use
  Company Number: DE-MYLANLABS-2019M1005518

PATIENT
  Age: 62 Year
  Sex: Male

DRUGS (25)
  1. PROGRAF [Suspect]
     Active Substance: TACROLIMUS\TACROLIMUS ANHYDROUS
     Indication: RENAL TRANSPLANT
     Dosage: UNK UNK, BID, ((2-0-1.5 MG) TWICE DAILY)
     Route: 048
     Dates: start: 201007
  2. FOLSAEURE [Concomitant]
     Active Substance: FOLIC ACID
     Indication: PRODUCT USED FOR UNKNOWN INDICATION
     Dosage: 5 MILLIGRAM, QD, (5 MG, ONCE DAILY (1 IN MORNING))
     Route: 065
  3. MONO-EMBOLEX [Concomitant]
     Active Substance: CERTOPARIN SODIUM
     Indication: PRODUCT USED FOR UNKNOWN INDICATION
     Dosage: UNK UNK, BID, (1 IN MORNING AND 1 IN EVENING,  TWICE DAILY)
  4. 9 VITAMINEKOMPLEX [Concomitant]
     Indication: PRODUCT USED FOR UNKNOWN INDICATION
     Dosage: UNK UNK, QD, (UNK UNK, ONCE DAILY (1 IN MORNING))
  5. URBASON                            /00049601/ [Concomitant]
     Active Substance: METHYLPREDNISOLONE
     Dosage: 4 MILLIGRAM, QD, (4 MG, ONCE DAILY (IN MORNING))
  6. MICARDIS [Concomitant]
     Active Substance: TELMISARTAN
     Indication: PRODUCT USED FOR UNKNOWN INDICATION
     Dosage: 40 MILLIGRAM, QD, (40 MG, ONCE DAILY (1 IN MORNING))
     Route: 065
  7. URBASON                            /00049601/ [Concomitant]
     Active Substance: METHYLPREDNISOLONE
     Dosage: 6 MILLIGRAM, QD, (6 MG, ONCE DAILY (1 AND 1/2 IN MORNING))
  8. SIMVASTATIN. [Concomitant]
     Active Substance: SIMVASTATIN
     Dosage: 20 MILLIGRAM, QD, (20 MG, ONCE DAILY ( IN EVENING))
     Dates: start: 20101016
  9. MYFORTIC [Concomitant]
     Active Substance: MYCOPHENOLATE SODIUM
     Indication: PRODUCT USED FOR UNKNOWN INDICATION
     Dosage: 360 MILLIGRAM, BID, (360 MG, TWICE DAILY (1 IN MORNING AND 1 IN EVENING)
  10. IMUREK                             /00001501/ [Concomitant]
     Active Substance: AZATHIOPRINE
     Indication: PRODUCT USED FOR UNKNOWN INDICATION
     Dosage: 50 MILLIGRAM, BID, (50 MG, TWICE DAILY (1 IN MORNING AND 1 IN EVENING))
  11. LAXOBERAL [Concomitant]
     Active Substance: SODIUM PICOSULFATE
     Indication: PRODUCT USED FOR UNKNOWN INDICATION
     Dosage: 30 GTT DROPS, QD, (30 DROPS, ONCE DAILY (IN MORNING))
  12. AMIODARONE [Suspect]
     Active Substance: AMIODARONE
     Indication: PRODUCT USED FOR UNKNOWN INDICATION
     Dosage: UNK, (UNK UNK, UNKNOWN FREQ.)
     Route: 065
  13. PROGRAF [Suspect]
     Active Substance: TACROLIMUS\TACROLIMUS ANHYDROUS
     Dosage: 10 MILLIGRAM, BID, (20 MG, ONCE DAILY ( IN EVENING))
     Route: 048
     Dates: start: 201010, end: 201012
  14. DECOSTRIOL [Concomitant]
     Active Substance: CALCITRIOL
     Indication: PRODUCT USED FOR UNKNOWN INDICATION
     Dosage: 0.5 MICROGRAM, QD, (0.5 ?G, ONCE DAILY (1 IN MORNING))
  15. PANTOPRAZOLE [Concomitant]
     Active Substance: PANTOPRAZOLE
     Indication: PRODUCT USED FOR UNKNOWN INDICATION
     Dosage: 40 MILLIGRAM, QD, (40 MG, ONCE DAILY (1 IN MORNING))
     Route: 065
  16. BISOPROLOL HEMIFUMARATE [Concomitant]
     Active Substance: BISOPROLOL FUMARATE
     Indication: PRODUCT USED FOR UNKNOWN INDICATION
     Dosage: UNK UNK, TID, ((1 IN MORNING, HALF IN NOON, 1 IN EVENING) THRICE DAILY)
     Route: 065
  17. L-THYROXIN HENNING [Concomitant]
     Active Substance: LEVOTHYROXINE SODIUM
     Indication: PRODUCT USED FOR UNKNOWN INDICATION
     Dosage: UNK UNK, QD, ((1 IN MORNING) ONCE DAILY)
  18. MARCUMAR [Concomitant]
     Active Substance: PHENPROCOUMON
     Indication: PRODUCT USED FOR UNKNOWN INDICATION
     Dosage: UNK, (ACCORDING TO PLAN)
     Route: 065
  19. PROGRAF [Suspect]
     Active Substance: TACROLIMUS\TACROLIMUS ANHYDROUS
     Dosage: UNK UNK, QD, (2X1MG) ONCE DAILY)
     Route: 048
     Dates: start: 201009
  20. URBASON                            /00049601/ [Concomitant]
     Active Substance: METHYLPREDNISOLONE
     Dosage: 8 MILLIGRAM, QD, (8 MG, ONCE DAILY (1 IN MORNING))
  21. BISOPROLOL HEMIFUMARATE [Concomitant]
     Active Substance: BISOPROLOL FUMARATE
     Dosage: 5 MILLIGRAM, BID, (5 MG, TWICE DAILY (1 IN MORNING- 1 IN EVENING)
     Route: 065
  22. SIMVASTATIN. [Concomitant]
     Active Substance: SIMVASTATIN
     Dosage: 40 MILLIGRAM, QD, (40 MG, ONCE DAILY (1 IN EVENING)
     Route: 065
  23. VALCYTE [Concomitant]
     Active Substance: VALGANCICLOVIR HYDROCHLORIDE
     Indication: PRODUCT USED FOR UNKNOWN INDICATION
     Dosage: 450 MILLIGRAM, BID, (450 MG, TWICE DAILY (1 IN MORNING, 1 IN EVENING))
     Route: 065
  24. CORDAREX [Concomitant]
     Active Substance: AMIODARONE
     Indication: PRODUCT USED FOR UNKNOWN INDICATION
     Dosage: 200 MILLIGRAM, QD, (200 MG, ONCE DAILY (IN MORNING))
  25. ROCALTROL [Concomitant]
     Active Substance: CALCITRIOL
     Indication: PRODUCT USED FOR UNKNOWN INDICATION
     Dosage: 0.5 MICROGRAM, QD, (0.5 ?G, ONCE DAILY (1 IN MORNING))
     Route: 065

REACTIONS (4)
  - Optic atrophy [Not Recovered/Not Resolved]
  - Movement disorder [Unknown]
  - Constipation [Unknown]
  - Immunosuppressant drug level increased [Recovered/Resolved]

NARRATIVE: CASE EVENT DATE: 20100824
